FAERS Safety Report 9457860 (Version 1)
Quarter: 2013Q3

REPORT INFORMATION
  Report Type: Spontaneous
  Country: CA (occurrence: CA)
  Receive Date: 20130814
  Receipt Date: 20130814
  Transmission Date: 20140515
  Serious: Yes (Other)
  Sender: FDA-Public Use
  Company Number: CA-ROCHE-1261174

PATIENT
  Age: 13 Year
  Sex: Male

DRUGS (4)
  1. XOLAIR [Suspect]
     Indication: ASTHMA
     Dosage: START DATE : 17/MAY/2012
     Route: 058
  2. ZENHALE [Concomitant]
  3. SINGULAIR [Concomitant]
  4. VENTOLIN [Concomitant]

REACTIONS (5)
  - Vomiting [Unknown]
  - Arthropod sting [Recovering/Resolving]
  - Dysphagia [Unknown]
  - Malaise [Unknown]
  - Nausea [Unknown]
